FAERS Safety Report 9734414 (Version 1)
Quarter: 2013Q4

REPORT INFORMATION
  Report Type: Spontaneous
  Country: US (occurrence: US)
  Receive Date: 20131206
  Receipt Date: 20131206
  Transmission Date: 20140711
  Serious: Yes (Hospitalization)
  Sender: FDA-Public Use
  Company Number: PHHY2013US137842

PATIENT
  Age: 35 Year
  Sex: Female

DRUGS (1)
  1. SIMVASTATIN [Suspect]

REACTIONS (10)
  - Portal fibrosis [Unknown]
  - Hepatitis [Unknown]
  - Nausea [Unknown]
  - Jaundice [Unknown]
  - Chills [Unknown]
  - Fatigue [Unknown]
  - Chromaturia [Unknown]
  - Faeces discoloured [Unknown]
  - Ocular icterus [Unknown]
  - Pruritus generalised [Unknown]
